FAERS Safety Report 12109335 (Version 2)
Quarter: 2016Q1

REPORT INFORMATION
  Report Type: Spontaneous
  Country: US (occurrence: US)
  Receive Date: 20160224
  Receipt Date: 20160329
  Transmission Date: 20160526
  Serious: Yes (Hospitalization)
  Sender: FDA-Public Use
  Company Number: US-PFIZER INC-2016108902

PATIENT
  Age: 81 Year
  Sex: Male

DRUGS (5)
  1. ADVIL [Suspect]
     Active Substance: IBUPROFEN
     Indication: ARTHRALGIA
     Dosage: 200MG, THREE TO FOUR DURING THE DAY AND ONE AT BEDTIME
     Dates: start: 2012
  2. ADVIL [Suspect]
     Active Substance: IBUPROFEN
     Dosage: 200 MG EVERY 2-3 HOURS WHEN AWAKE
  3. FERROUS SULFATE [Concomitant]
     Active Substance: FERROUS SULFATE\FERROUS SULFATE, DRIED
     Dosage: ONE 325 MG DAILY
  4. TRIAM/HCTZ [Concomitant]
     Indication: BLOOD PRESSURE ABNORMAL
     Dosage: [TRIAMTERENE 37.5 MG]/[HYDROCHLORTHIAZIDE 25 MG] ONCE A DAY IN THE MORNING
     Dates: start: 1998
  5. FERROUS SULFATE [Concomitant]
     Active Substance: FERROUS SULFATE\FERROUS SULFATE, DRIED
     Indication: HAEMOGLOBIN DECREASED
     Dosage: 975 MG, DAILY
     Dates: start: 2006

REACTIONS (4)
  - Arthralgia [Not Recovered/Not Resolved]
  - Intentional product misuse [Unknown]
  - Drug effect incomplete [Not Recovered/Not Resolved]
  - Condition aggravated [Not Recovered/Not Resolved]

NARRATIVE: CASE EVENT DATE: 201510
